FAERS Safety Report 10968403 (Version 1)
Quarter: 2015Q1

REPORT INFORMATION
  Report Type: Spontaneous
  Country: GB (occurrence: GB)
  Receive Date: 20150330
  Receipt Date: 20150330
  Transmission Date: 20150721
  Serious: Yes (Hospitalization)
  Sender: FDA-Public Use
  Company Number: PHHY2015GB033549

PATIENT
  Age: 40 Year
  Sex: Male

DRUGS (4)
  1. STANOZOLOL [Suspect]
     Active Substance: STANOZOLOL
     Indication: MUSCLE MASS
     Route: 065
  2. TRENBOLONE [Suspect]
     Active Substance: TRENBOLONE
     Indication: MUSCLE MASS
     Route: 065
  3. TESTOSTERONE. [Suspect]
     Active Substance: TESTOSTERONE
     Indication: MUSCLE MASS
     Route: 065
  4. DROMOSTANOLONE PROPIONATE [Suspect]
     Active Substance: DROMOSTANOLONE PROPIONATE
     Indication: MUSCLE MASS
     Route: 065

REACTIONS (9)
  - Asthenia [Recovered/Resolved]
  - Alanine aminotransferase increased [None]
  - Oxygen saturation [None]
  - Polycythaemia [Recovered/Resolved]
  - Cerebral infarction [Recovered/Resolved]
  - Transient ischaemic attack [Recovered/Resolved]
  - Blood viscosity increased [Recovered/Resolved]
  - Lacunar infarction [Recovered/Resolved]
  - Paraesthesia [Recovered/Resolved]
